FAERS Safety Report 19791017 (Version 1)
Quarter: 2021Q3

REPORT INFORMATION
  Report Type: Other
  Country: DE (occurrence: DE)
  Receive Date: 20210906
  Receipt Date: 20210906
  Transmission Date: 20211014
  Serious: Yes (Hospitalization)
  Sender: FDA-Public Use
  Company Number: DE-ROCHE-2218360

PATIENT
  Age: 45 Year
  Sex: Female
  Weight: 84 kg

DRUGS (12)
  1. MIRTAZAPIN [Suspect]
     Active Substance: MIRTAZAPINE
     Route: 065
     Dates: end: 202009
  2. MIRTAZAPIN [Suspect]
     Active Substance: MIRTAZAPINE
     Route: 065
     Dates: start: 20201017
  3. KETOZOLIN [Concomitant]
  4. OCREVUS [Suspect]
     Active Substance: OCRELIZUMAB
     Route: 042
     Dates: start: 20190301
  5. OCREVUS [Suspect]
     Active Substance: OCRELIZUMAB
     Route: 042
     Dates: start: 20200201
  6. TEBONIN [Concomitant]
     Active Substance: GINKGO
  7. ZINC. [Concomitant]
     Active Substance: ZINC
  8. OCREVUS [Suspect]
     Active Substance: OCRELIZUMAB
     Indication: RELAPSING-REMITTING MULTIPLE SCLEROSIS
     Route: 042
     Dates: start: 20180831
  9. MIRTAZAPIN [Suspect]
     Active Substance: MIRTAZAPINE
     Indication: PRODUCT USED FOR UNKNOWN INDICATION
     Route: 065
  10. VITAMIN D3 [Concomitant]
     Active Substance: CHOLECALCIFEROL
  11. TRAZODONE [Concomitant]
     Active Substance: TRAZODONE HYDROCHLORIDE
  12. OCREVUS [Suspect]
     Active Substance: OCRELIZUMAB
     Route: 042
     Dates: start: 20180913

REACTIONS (16)
  - Coordination abnormal [Recovered/Resolved]
  - Body temperature increased [Recovered/Resolved]
  - Alopecia [Recovered/Resolved]
  - Upper respiratory tract infection [Recovered/Resolved]
  - Nasopharyngitis [Not Recovered/Not Resolved]
  - Tinnitus [Recovered/Resolved]
  - Neuralgia [Recovered/Resolved]
  - Pruritus [Recovered/Resolved]
  - Skin exfoliation [Recovered/Resolved]
  - Psoriasis [Recovered/Resolved]
  - Oropharyngeal pain [Recovering/Resolving]
  - Bronchitis [Not Recovered/Not Resolved]
  - Weight increased [Recovering/Resolving]
  - Laryngitis [Recovered/Resolved]
  - Arthralgia [Recovered/Resolved]
  - Chronic sinusitis [Recovered/Resolved]

NARRATIVE: CASE EVENT DATE: 20180913
